FAERS Safety Report 6506529-4 (Version None)
Quarter: 2009Q4

REPORT INFORMATION
  Report Type: 
  Country: None (occurrence: None)
  Receive Date: 20091216
  Receipt Date: 20091207
  Transmission Date: 20100525
  Serious: Yes (Life-Threatening, Hospitalization)
  Sender: FDA-Public Use
  Company Number: 1-20953505

PATIENT
  Age: 60 Year
  Sex: Female

DRUGS (10)
  1. HYDROXYZINE [Suspect]
     Dosage: 100 MG, ONCE, INTRAVENOUS
     Route: 042
  2. LOSARTAN [Concomitant]
  3. LEVOTHYROXINE SODIUM [Concomitant]
  4. FENOFIBRATE [Concomitant]
  5. LORAZEPAM [Concomitant]
  6. METHYLPREDNISOLONE [Concomitant]
  7. PROPOFOL [Concomitant]
  8. MIDAZOLAM HCL [Concomitant]
  9. SUFENTANIL CITRATE [Concomitant]
  10. SEVOFLURANE [Concomitant]

REACTIONS (2)
  - ANAPHYLACTIC REACTION [None]
  - TYPE I HYPERSENSITIVITY [None]
